FAERS Safety Report 14604479 (Version 2)
Quarter: 2018Q2

REPORT INFORMATION
  Report Type: Spontaneous
  Country: FR (occurrence: FR)
  Receive Date: 20180306
  Receipt Date: 20180601
  Transmission Date: 20180711
  Serious: Yes (Death, Hospitalization, Other)
  Sender: FDA-Public Use
  Company Number: FR-TEVA-2018-FR-863008

PATIENT
  Age: 42 Year
  Sex: Male

DRUGS (23)
  1. QUETIAPINE. [Suspect]
     Active Substance: QUETIAPINE
     Dosage: 450 MILLIGRAM DAILY;
     Route: 048
     Dates: start: 20151228
  2. QUETIAPINE. [Suspect]
     Active Substance: QUETIAPINE
     Dosage: 600 MILLIGRAM DAILY;
     Dates: start: 20151210, end: 20160128
  3. QUETIAPINE. [Suspect]
     Active Substance: QUETIAPINE
     Indication: PRODUCT USED FOR UNKNOWN INDICATION
     Dosage: 600 MILLIGRAM DAILY;
     Route: 048
     Dates: start: 20160128
  4. QUETIAPINE. [Suspect]
     Active Substance: QUETIAPINE
     Dosage: 200 MILLIGRAM DAILY;
     Route: 048
     Dates: start: 20151215
  5. PARKINANE [Suspect]
     Active Substance: TRIHEXYPHENIDYL HYDROCHLORIDE
     Indication: EXTRAPYRAMIDAL DISORDER
     Dosage: 15 MILLIGRAM DAILY;
     Route: 048
     Dates: start: 20160118, end: 20160127
  6. ABILIFY [Suspect]
     Active Substance: ARIPIPRAZOLE
     Dosage: 30 MILLIGRAM DAILY;
     Route: 048
     Dates: start: 20160114, end: 20160128
  7. QUETIAPINE. [Suspect]
     Active Substance: QUETIAPINE
     Dosage: 100 MILLIGRAM DAILY;
     Route: 048
     Dates: start: 20151210, end: 20160128
  8. ABILIFY [Suspect]
     Active Substance: ARIPIPRAZOLE
     Indication: PRODUCT USED FOR UNKNOWN INDICATION
     Dosage: 20 MILLIGRAM DAILY;
     Route: 048
     Dates: start: 20150112, end: 20160113
  9. SULFARLEM [Suspect]
     Active Substance: ANETHOLTRITHION
     Indication: APTYALISM
     Route: 048
     Dates: start: 20151228
  10. XEROQUEL [Suspect]
     Active Substance: QUETIAPINE FUMARATE
     Indication: PRODUCT USED FOR UNKNOWN INDICATION
     Dosage: 600 MILLIGRAM DAILY;
     Route: 048
     Dates: start: 20151210, end: 20160128
  11. LOXAPAC [Suspect]
     Active Substance: LOXAPINE
     Indication: PRODUCT USED FOR UNKNOWN INDICATION
     Dosage: 1 DOSAGE FORMS DAILY;
     Route: 048
     Dates: start: 20151201, end: 20160128
  12. XEROQUEL [Suspect]
     Active Substance: QUETIAPINE FUMARATE
     Dosage: 450 MILLIGRAM DAILY;
     Route: 048
     Dates: start: 20151228
  13. QUETIAPINE. [Suspect]
     Active Substance: QUETIAPINE
     Dosage: 400 MILLIGRAM DAILY;
     Route: 048
     Dates: start: 20151218
  14. ZOPICLONE [Suspect]
     Active Substance: ZOPICLONE
     Indication: INSOMNIA
     Dosage: 7.5 MILLIGRAM DAILY;
     Route: 048
     Dates: start: 20151201, end: 20160127
  15. METFORMIN [Suspect]
     Active Substance: METFORMIN HYDROCHLORIDE
     Indication: DIABETES MELLITUS
     Dosage: 1500 MILLIGRAM DAILY;
     Route: 048
     Dates: start: 20151201, end: 20160128
  16. STAGID [Suspect]
     Active Substance: METFORMIN PAMOATE
     Indication: DIABETES MELLITUS
     Dosage: 1500 MILLIGRAM DAILY;
     Route: 048
     Dates: start: 20151201, end: 20160128
  17. LAROXYL [Suspect]
     Active Substance: AMITRIPTYLINE HYDROCHLORIDE
     Indication: DEPRESSION
     Dosage: 75 MILLIGRAM DAILY;
     Route: 048
     Dates: start: 20151230, end: 20160127
  18. XEROQUEL [Suspect]
     Active Substance: QUETIAPINE FUMARATE
     Dosage: 400 MILLIGRAM DAILY;
     Route: 048
     Dates: start: 20151218
  19. XEROQUEL [Suspect]
     Active Substance: QUETIAPINE FUMARATE
     Dosage: 200 MILLIGRAM DAILY;
     Route: 048
     Dates: start: 20151215
  20. LOXAPAC [Suspect]
     Active Substance: LOXAPINE
     Dosage: 180 MILLIGRAM DAILY;
     Route: 065
     Dates: end: 20160128
  21. IMOVANE [Suspect]
     Active Substance: ZOPICLONE
     Indication: INSOMNIA
     Dosage: 7.5 MILLIGRAM DAILY;
     Route: 048
     Dates: start: 20151201, end: 20160127
  22. XEROQUEL [Suspect]
     Active Substance: QUETIAPINE FUMARATE
     Dosage: 100 MILLIGRAM DAILY;
     Route: 048
     Dates: start: 20151215
  23. XEROQUEL [Suspect]
     Active Substance: QUETIAPINE FUMARATE
     Dosage: 600 MILLIGRAM DAILY;
     Route: 048
     Dates: start: 20160128

REACTIONS (2)
  - Completed suicide [Fatal]
  - Faecaloma [Fatal]

NARRATIVE: CASE EVENT DATE: 20160128
